FAERS Safety Report 19407041 (Version 5)
Quarter: 2022Q2

REPORT INFORMATION
  Report Type: Spontaneous
  Country: US (occurrence: US)
  Receive Date: 20210611
  Receipt Date: 20220418
  Transmission Date: 20220721
  Serious: Yes (Other)
  Sender: FDA-Public Use
  Company Number: US-NOVARTISPH-NVSC2021US131549

PATIENT
  Age: 80 Year
  Sex: Male
  Weight: 74.1 kg

DRUGS (3)
  1. LUTATHERA [Suspect]
     Active Substance: LUTETIUM OXODOTREOTIDE LU-177
     Indication: Small intestine neuroendocrine tumour
     Dosage: UNK (RECEIVED INJECTION DOSE-1)
     Route: 065
  2. LUTATHERA [Suspect]
     Active Substance: LUTETIUM OXODOTREOTIDE LU-177
     Dosage: UNK (3 OF 4 CYCLE COMPLETED)
     Route: 042
     Dates: start: 20210414, end: 20211027
  3. LUTATHERA [Suspect]
     Active Substance: LUTETIUM OXODOTREOTIDE LU-177
     Dosage: UNK (DOSE SEQUENCE 4)
     Route: 065
     Dates: start: 20220216, end: 20220216

REACTIONS (5)
  - Renal impairment [Unknown]
  - Ill-defined disorder [Unknown]
  - Liver function test abnormal [Unknown]
  - Blood test abnormal [Not Recovered/Not Resolved]
  - Haemoglobin decreased [Unknown]

NARRATIVE: CASE EVENT DATE: 20211201
